FAERS Safety Report 18984712 (Version 3)
Quarter: 2021Q4

REPORT INFORMATION
  Report Type: Other
  Country: US (occurrence: None)
  Receive Date: 20210309
  Receipt Date: 20211216
  Transmission Date: 20220303
  Serious: Yes (Hospitalization, Other)
  Sender: FDA-Public Use
  Company Number: US-ROCHE-2777492

PATIENT
  Age: 43 Year
  Sex: Female
  Weight: 126.67 kg

DRUGS (3)
  1. OCREVUS [Suspect]
     Active Substance: OCRELIZUMAB
     Indication: Relapsing-remitting multiple sclerosis
     Dosage: (PRESCRIBED AS 300 MG ON DAY1 AND DAY15)16/APR/2021,17/JUL/2020,31/JAN/2020,12/JUL/2019,28/JUN/2019
     Route: 042
  2. OCREVUS [Suspect]
     Active Substance: OCRELIZUMAB
     Dosage: INFUSE 300MG DAY 1; INFUSE 300MG DAY 15, ONGOING : NO
     Route: 042
  3. MODERNA COVID-19 VACCINE [Suspect]
     Active Substance: ELASOMERAN
     Indication: COVID-19
     Route: 065

REACTIONS (7)
  - COVID-19 pneumonia [Recovered/Resolved]
  - Pneumonia [Recovered/Resolved]
  - Pruritus [Not Recovered/Not Resolved]
  - COVID-19 [Recovered/Resolved]
  - Cholelithiasis [Recovered/Resolved]
  - Weight decreased [Not Recovered/Not Resolved]
  - Antibody test positive [Unknown]

NARRATIVE: CASE EVENT DATE: 20200923
